FAERS Safety Report 9717184 (Version 2)
Quarter: 2013Q4

REPORT INFORMATION
  Report Type: Spontaneous
  Country: US (occurrence: None)
  Receive Date: 20131125
  Receipt Date: 20131213
  Transmission Date: 20140711
  Serious: Yes (Other)
  Sender: FDA-Public Use
  Company Number: 2013-US-002730

PATIENT
  Age: 58 Year
  Sex: Female
  Weight: 72.6 kg

DRUGS (5)
  1. XYREM (SODIUM OXYBATE) ORAL SOLUTION, 500MG/ML [Suspect]
     Indication: CATAPLEXY
     Dosage: FIRST DOSE
     Route: 048
     Dates: start: 20131009
  2. XYREM (SODIUM OXYBATE) ORAL SOLUTION, 500MG/ML [Suspect]
     Indication: NARCOLEPSY
     Dosage: FIRST DOSE
     Route: 048
     Dates: start: 20131009
  3. LEVOTHYROXINE (LEVOTHYROXINE) [Concomitant]
  4. ZOLOFT (SERTRALINE HYDROCHLORIDE) [Concomitant]
  5. CATAFLAM (DICLOFENAC POTASSIUM) [Concomitant]

REACTIONS (4)
  - Convulsion [None]
  - Depression [None]
  - Cataplexy [None]
  - Disorientation [None]
